FAERS Safety Report 5302294-7 (Version None)
Quarter: 2007Q2

REPORT INFORMATION
  Report Type: 
  Country: None (occurrence: None)
  Receive Date: 20070412
  Receipt Date: 20070405
  Transmission Date: 20071010
  Serious: Yes (Hospitalization)
  Sender: FDA-Public Use
  Company Number: 2007-01759

PATIENT
  Age: 65 Year
  Sex: Female

DRUGS (4)
  1. DEXAMETHASONE [Suspect]
     Indication: ANGLE CLOSURE GLAUCOMA
     Dosage: TOPICAL
     Route: 061
     Dates: start: 20060101
  2. ACETAZOLAMIDE (ACETAZOLOMIDE) [Suspect]
     Indication: ANGLE CLOSURE GLAUCOMA
     Dosage: INTRAVENOUS
     Route: 042
     Dates: start: 20060101
  3. IOPIDINE (APRACLONIDINE) 1% [Suspect]
     Indication: ANGLE CLOSURE GLAUCOMA
     Dosage: TOPICAL
     Route: 061
     Dates: start: 20060101
  4. PILOCARPINE [Suspect]
     Indication: ANGLE CLOSURE GLAUCOMA
     Dosage: TOPICAL
     Route: 061
     Dates: start: 20060101

REACTIONS (1)
  - RETINOPATHY HAEMORRHAGIC [None]
